FAERS Safety Report 19029397 (Version 1)
Quarter: 2021Q1

REPORT INFORMATION
  Report Type: Other
  Country: GB (occurrence: GB)
  Receive Date: 20210319
  Receipt Date: 20210319
  Transmission Date: 20210420
  Serious: Yes (Other)
  Sender: FDA-Public Use
  Company Number: GB-ENCUBE-000049

PATIENT
  Age: 66 Year
  Sex: Female

DRUGS (3)
  1. TRIAMCINOLONE [Suspect]
     Active Substance: TRIAMCINOLONE
     Indication: OSTEOARTHRITIS
     Dosage: 40 MG OF TRIAMCINOLONE DILUTED WITH 6 ML OF 0.25% BUPIVACAINE DRAWN FROM A SINGLE VIAL
     Route: 014
  2. LIDOCAINE. [Concomitant]
     Active Substance: LIDOCAINE
     Indication: PRODUCT USED FOR UNKNOWN INDICATION
     Dosage: 5 ML OF 1% LIDOCAINE
  3. BUPIVACAINE. [Concomitant]
     Active Substance: BUPIVACAINE
     Indication: OSTEOARTHRITIS
     Dosage: 0 MG OF TRIAMCINOLONE DILUTED WITH 6 ML OF 0.25% BUPIVACAINE DRAWN FROM A SINGLE VIAL
     Route: 014

REACTIONS (2)
  - Arthritis fungal [Recovering/Resolving]
  - Pain [Unknown]
